FAERS Safety Report 13997570 (Version 1)
Quarter: 2017Q3

REPORT INFORMATION
  Report Type: Spontaneous
  Country: AU (occurrence: AU)
  Receive Date: 20170921
  Receipt Date: 20170921
  Transmission Date: 20171128
  Serious: Yes (Other)
  Sender: FDA-Public Use
  Company Number: AU-LUPIN PHARMACEUTICALS INC.-2017-05490

PATIENT
  Age: 50 Year
  Sex: Male

DRUGS (4)
  1. OXYCODONE [Suspect]
     Active Substance: OXYCODONE
     Indication: PAIN
     Dosage: 10 MG, BID (CONTROLLED-RELEASE)
     Route: 065
  2. OXYCODONE [Suspect]
     Active Substance: OXYCODONE
     Dosage: 20 MG, BID (CONTROLLED-RELEASE)
     Route: 065
  3. OXYCODONE HCL / NALOXONE HCL PROLONGED RELEASE TABLETS [Suspect]
     Active Substance: NALOXONE HYDROCHLORIDE\OXYCODONE HYDROCHLORIDE
     Dosage: 40/20 MG, BID
     Route: 065
  4. OXYCODONE HCL / NALOXONE HCL PROLONGED RELEASE TABLETS [Suspect]
     Active Substance: NALOXONE HYDROCHLORIDE\OXYCODONE HYDROCHLORIDE
     Indication: PAIN
     Dosage: UNK
     Route: 065

REACTIONS (4)
  - Metastases to liver [Unknown]
  - Drug ineffective [Unknown]
  - Overdose [Unknown]
  - Pain [Unknown]
